FAERS Safety Report 8308191-7 (Version None)
Quarter: 2012Q2

REPORT INFORMATION
  Report Type: 
  Country: None (occurrence: None)
  Receive Date: 20120424
  Receipt Date: 20120423
  Transmission Date: 20120825
  Serious: Yes (Death, Other)
  Sender: FDA-Public Use
  Company Number: US-JNJFOC-20120409753

PATIENT

DRUGS (2)
  1. DOXORUBICIN HCL [Suspect]
     Indication: MYCOSIS FUNGOIDES
     Route: 042
  2. BEXAROTENE [Suspect]
     Indication: MYCOSIS FUNGOIDES
     Route: 048

REACTIONS (3)
  - PALMAR-PLANTAR ERYTHRODYSAESTHESIA SYNDROME [None]
  - TUMOUR PAIN [None]
  - MYCOSIS FUNGOIDES [None]
